FAERS Safety Report 8904209 (Version 1)
Quarter: 2012Q4

REPORT INFORMATION
  Report Type: 
  Country: US (occurrence: US)
  Receive Date: 20121112
  Receipt Date: 20121112
  Transmission Date: 20130627
  Serious: Yes (Hospitalization)
  Sender: FDA-Public Use
  Company Number: US-ASTRAZENECA-2012SE84293

PATIENT
  Age: 31 Year
  Sex: Male

DRUGS (2)
  1. SEROQUEL XR [Suspect]
     Indication: INSOMNIA
     Route: 048
  2. SEROQUEL XR [Suspect]
     Indication: BIPOLAR DISORDER
     Route: 048

REACTIONS (6)
  - Renal injury [Unknown]
  - Pneumonia [Unknown]
  - Neuropathy peripheral [Unknown]
  - Insomnia [Unknown]
  - Swelling [Unknown]
  - Drug dose omission [Unknown]
